FAERS Safety Report 10687709 (Version 1)
Quarter: 2014Q4

REPORT INFORMATION
  Report Type: Spontaneous
  Country: US (occurrence: None)
  Receive Date: 20141231
  Receipt Date: 20141231
  Transmission Date: 20150529
  Serious: Yes (Hospitalization)
  Sender: FDA-Public Use
  Company Number: None

PATIENT
  Age: 87 Year
  Sex: Male
  Weight: 101.2 kg

DRUGS (1)
  1. BACLOFEN. [Suspect]
     Active Substance: BACLOFEN
     Indication: ARTHRALGIA
     Dosage: 10 MG  BID  PO
     Route: 048
     Dates: start: 20141224, end: 20141226

REACTIONS (1)
  - Mental status changes [None]

NARRATIVE: CASE EVENT DATE: 20141226
